FAERS Safety Report 16690728 (Version 2)
Quarter: 2019Q3

REPORT INFORMATION
  Report Type: Spontaneous
  Country: US (occurrence: US)
  Receive Date: 20190811
  Receipt Date: 20190917
  Transmission Date: 20191004
  Serious: Yes (Hospitalization)
  Sender: FDA-Public Use
  Company Number: PHEH2019US032719

PATIENT
  Sex: Female

DRUGS (1)
  1. TRAVATAN Z [Suspect]
     Active Substance: TRAVOPROST
     Indication: GLAUCOMA
     Dosage: 1 GTT, QD
     Route: 047

REACTIONS (3)
  - Fall [Recovering/Resolving]
  - Product packaging issue [Unknown]
  - Hand fracture [Recovering/Resolving]
